FAERS Safety Report 8731526 (Version 2)
Quarter: 2012Q4

REPORT INFORMATION
  Report Type: 
  Country: JP (occurrence: JP)
  Receive Date: 20120820
  Receipt Date: 20121207
  Transmission Date: 20130627
  Serious: Yes (Hospitalization)
  Sender: FDA-Public Use
  Company Number: JP-SANOFI-AVENTIS-2012SA059110

PATIENT
  Age: 67 Year
  Sex: Female
  Weight: 63.6 kg

DRUGS (12)
  1. PLAVIX [Suspect]
     Indication: ACUTE CORONARY SYNDROME
     Route: 048
  2. WARFARIN [Suspect]
     Indication: CABG
     Route: 048
  3. BAYASPIRIN [Suspect]
     Indication: ACUTE CORONARY SYNDROME
     Route: 048
  4. INVESTIGATIONAL STUDY DRUG [Suspect]
     Indication: TYPE 2 DIABETES MELLITUS
     Route: 065
     Dates: start: 20110523
  5. NOVORAPID [Concomitant]
     Indication: DIABETES MELLITUS
     Route: 058
     Dates: start: 20120713
  6. LASIX [Concomitant]
     Indication: DIURETIC THERAPY
     Route: 048
  7. LASIX [Concomitant]
     Indication: CABG
     Route: 048
  8. ITOROL [Concomitant]
     Indication: CABG
     Route: 048
  9. DILTIAZEM HYDROCHLORIDE [Concomitant]
     Indication: CABG
     Route: 048
  10. OLMETEC [Concomitant]
     Indication: HYPERTENSION
     Route: 048
  11. HEPARIN [Concomitant]
     Indication: CABG
     Dosage: dose: 500IU/HR
     Route: 042
     Dates: start: 20120711
  12. LANTUS [Concomitant]
     Indication: DIABETES MELLITUS
     Route: 058
     Dates: start: 20120713

REACTIONS (2)
  - Cholecystitis [Recovered/Resolved]
  - Cholelithiasis [None]
